FAERS Safety Report 4778985-3 (Version None)
Quarter: 2005Q3

REPORT INFORMATION
  Report Type: 
  Country: None (occurrence: None)
  Receive Date: 20050923
  Receipt Date: 20050919
  Transmission Date: 20060218
  Serious: Yes (Life-Threatening, Hospitalization)
  Sender: FDA-Public Use
  Company Number: 2005-132657-NL

PATIENT
  Age: 12 Year
  Sex: Female

DRUGS (5)
  1. ROCURONIUM [Suspect]
     Indication: ANAESTHESIA
     Dosage: INTRAVENOUS (NOS)
     Route: 042
     Dates: start: 20030611, end: 20030611
  2. ONDANSETRON [Suspect]
     Dosage: INTRAVENOUS (NOS)
     Route: 042
     Dates: start: 20030611, end: 20030611
  3. MORPHINE [Suspect]
     Indication: ANAESTHESIA
     Dosage: INTRAVENOUS (NOS)
     Route: 042
     Dates: start: 20030611, end: 20030611
  4. FENTANYL [Concomitant]
  5. PROPOFOL [Concomitant]

REACTIONS (1)
  - RASH MACULO-PAPULAR [None]
